FAERS Safety Report 13862180 (Version 1)
Quarter: 2017Q3

REPORT INFORMATION
  Report Type: Spontaneous
  Country: US (occurrence: US)
  Receive Date: 20170812
  Receipt Date: 20170812
  Transmission Date: 20171127
  Serious: No
  Sender: FDA-Public Use
  Company Number: US-009507513-1708USA005268

PATIENT
  Sex: Male

DRUGS (1)
  1. SINGULAIR [Suspect]
     Active Substance: MONTELUKAST SODIUM
     Indication: ANTIALLERGIC THERAPY
     Dosage: UNK, QD
     Route: 048
     Dates: start: 201310

REACTIONS (2)
  - Crying [Recovered/Resolved with Sequelae]
  - Mood altered [Recovered/Resolved with Sequelae]
